FAERS Safety Report 7533074-X (Version None)
Quarter: 2011Q2

REPORT INFORMATION
  Report Type: 
  Country: None (occurrence: None)
  Receive Date: 20110608
  Receipt Date: 20110525
  Transmission Date: 20111010
  Serious: Yes (Hospitalization)
  Sender: FDA-Public Use
  Company Number: US-ELI_LILLY_AND_COMPANY-US201102003615

PATIENT
  Sex: Female

DRUGS (25)
  1. FORTEO [Suspect]
     Dosage: 20 UG, DAILY (1/D)
  2. PRILOSEC [Concomitant]
     Dosage: UNK
  3. ASCORBIC ACID [Concomitant]
  4. FORTEO [Suspect]
     Dosage: 20 UG, QD
  5. ZANTAC [Concomitant]
  6. CYMBALTA [Concomitant]
     Dosage: UNK UNK, UNKNOWN
  7. NITROFURANTOIN [Concomitant]
     Dosage: UNK
  8. FORTEO [Suspect]
     Indication: OSTEOPOROSIS
     Dosage: 20 UG, DAILY (1/D)
     Dates: start: 20090622
  9. CALCIUM CARBONATE [Concomitant]
     Dosage: 1500 MG, UNKNOWN
  10. CARVEDILOL [Concomitant]
     Dosage: UNK
  11. CLORAZEPATE DIPOTASSIUM [Concomitant]
     Dosage: UNK
  12. AMLODIPINE BESYLATE [Concomitant]
  13. COLACE [Concomitant]
     Indication: DIARRHOEA
  14. DIOVAN [Concomitant]
  15. FORTEO [Suspect]
     Dosage: 20 UG, DAILY (1/D)
  16. FORTEO [Suspect]
     Dosage: 20 UG, QD
  17. OXYCODONE HCL [Concomitant]
     Dosage: 3.25 MG, AS NEEDED
  18. BENICAR [Concomitant]
     Dosage: UNK
  19. WARFARIN SODIUM [Concomitant]
     Dosage: UNK
  20. PRAVASTATIN [Concomitant]
  21. VITAMIN D [Concomitant]
  22. FLAXSEED OIL [Concomitant]
  23. SIMVASTATIN [Concomitant]
     Dosage: 20 MG, DAILY (1/D)
  24. PREVACID [Concomitant]
  25. VITAMIN B-12 [Concomitant]

REACTIONS (9)
  - OSTEOARTHRITIS [None]
  - HAEMORRHOIDS [None]
  - WRIST FRACTURE [None]
  - FALL [None]
  - MYALGIA [None]
  - JOINT DISLOCATION [None]
  - PAIN [None]
  - BONE PAIN [None]
  - KNEE ARTHROPLASTY [None]
